FAERS Safety Report 8491550-X (Version None)
Quarter: 2012Q3

REPORT INFORMATION
  Report Type: 
  Country: None (occurrence: None)
  Receive Date: 20120706
  Receipt Date: 20120626
  Transmission Date: 20120928
  Serious: Yes (Other)
  Sender: FDA-Public Use
  Company Number: US-JNJFOC-20120614623

PATIENT
  Age: 91 Year
  Sex: Female

DRUGS (3)
  1. XARELTO [Suspect]
     Route: 048
  2. XARELTO [Suspect]
     Indication: ATRIAL FIBRILLATION
     Route: 048
  3. ZYVOX [Interacting]
     Indication: STAPHYLOCOCCAL INFECTION

REACTIONS (4)
  - ABDOMINAL DISCOMFORT [None]
  - STAPHYLOCOCCAL INFECTION [None]
  - HAEMATOCHEZIA [None]
  - DRUG INTERACTION [None]
